FAERS Safety Report 6788874-0 (Version None)
Quarter: 2010Q2

REPORT INFORMATION
  Report Type: 
  Country: None (occurrence: None)
  Receive Date: 20100621
  Receipt Date: 20100401
  Transmission Date: 20101027
  Serious: Yes (Hospitalization)
  Sender: FDA-Public Use
  Company Number: UTC-000984

PATIENT
  Age: 67 Year
  Sex: Female

DRUGS (10)
  1. TYVASO [Suspect]
     Indication: PULMONARY ARTERIAL HYPERTENSION
     Dosage: 144 MCG, 36 MCG, 4 IN 1 D, INHALATION
     Route: 055
     Dates: start: 20100325
  2. REVATIO [Concomitant]
  3. PRILOSEC (OMEPRAZOLE) [Concomitant]
  4. PROTONIX [Concomitant]
  5. CITALOPRAM HYDROBROMIDE [Concomitant]
  6. BENICAR [Concomitant]
  7. LANOXIN [Concomitant]
  8. ALDACTONE [Concomitant]
  9. TOPROL XL (MEDTOPROLOL SUCCINATE) [Concomitant]
  10. FERROUS SULFATE TAB [Concomitant]

REACTIONS (1)
  - PULMONARY OEDEMA [None]
